FAERS Safety Report 4374347-1 (Version None)
Quarter: 2004Q2

REPORT INFORMATION
  Report Type: 
  Country: None (occurrence: None)
  Receive Date: 20040609
  Receipt Date: 20040521
  Transmission Date: 20050107
  Serious: Yes (Hospitalization)
  Sender: FDA-Public Use
  Company Number: PHEH2004US05668

PATIENT
  Age: 40 Year
  Sex: Female
  Weight: 63 kg

DRUGS (8)
  1. ZOMETA [Suspect]
     Indication: BONE DISORDER
     Dosage: UNKNOWN DOSE ONE TIME INFUSION
     Route: 042
     Dates: start: 20031001, end: 20031001
  2. HEPARIN [Concomitant]
     Indication: PROPHYLAXIS
     Dates: start: 20020201, end: 20031001
  3. DURAGESIC [Concomitant]
     Indication: SPINAL FRACTURE
     Dates: start: 20030901
  4. LOVENOX [Concomitant]
     Indication: PROPHYLAXIS
  5. PERCOCET [Concomitant]
     Indication: PAIN
     Dates: start: 20031001
  6. LOMOTIL [Concomitant]
     Indication: DIARRHOEA
     Dates: start: 19990101
  7. ATIVAN [Concomitant]
     Indication: ANXIETY
     Dates: start: 20031001
  8. AMBIEN [Concomitant]
     Indication: SLEEP DISORDER
     Dates: start: 20031001

REACTIONS (3)
  - MUSCLE SPASMS [None]
  - PAIN IN EXTREMITY [None]
  - VOMITING [None]
